FAERS Safety Report 7298013-8 (Version None)
Quarter: 2011Q1

REPORT INFORMATION
  Report Type: 
  Country: None (occurrence: None)
  Receive Date: 20110217
  Receipt Date: 20110210
  Transmission Date: 20110831
  Serious: No
  Sender: FDA-Public Use
  Company Number: US-PFIZER INC-2010163741

PATIENT
  Sex: Male

DRUGS (3)
  1. LEVOTHYROXINE SODIUM [Suspect]
  2. LIPITOR [Suspect]
     Dosage: UNK
  3. OMEPRAZOLE [Suspect]

REACTIONS (2)
  - DYSGEUSIA [None]
  - ABDOMINAL DISCOMFORT [None]
